FAERS Safety Report 8030603-7 (Version None)
Quarter: 2012Q1

REPORT INFORMATION
  Report Type: 
  Country: None (occurrence: None)
  Receive Date: 20120105
  Receipt Date: 20111220
  Transmission Date: 20120608
  Serious: Yes (Other)
  Sender: FDA-Public Use
  Company Number: 20110864

PATIENT
  Age: 73 Year
  Sex: Female

DRUGS (9)
  1. VITAMIN D [Suspect]
  2. PLAVIX [Suspect]
  3. DETROL [Concomitant]
  4. ZOCOR [Suspect]
  5. PEPCID [Suspect]
  6. SYNTHROID [Suspect]
  7. ASPIRIN [Suspect]
     Dosage: 81 MG, 2 TABS DAILY
  8. CYANOCOBALAMIN [Suspect]
     Dosage: 1 CC MONTHLY INTRAMUSCULAR
     Route: 030
     Dates: start: 20100101, end: 20111201
  9. POTASSIUM CHLORIDE [Suspect]

REACTIONS (4)
  - BALANCE DISORDER [None]
  - DYSPNOEA [None]
  - DECREASED APPETITE [None]
  - WHITE BLOOD CELL COUNT ABNORMAL [None]
